FAERS Safety Report 8671647 (Version 4)
Quarter: 2012Q4

REPORT INFORMATION
  Report Type: 
  Country: US (occurrence: US)
  Receive Date: 20120718
  Receipt Date: 20120824
  Transmission Date: 20130627
  Serious: Yes (Hospitalization, Other)
  Sender: FDA-Public Use
  Company Number: US-009507513-2012SP034987

PATIENT

DRUGS (6)
  1. NUVARING [Suspect]
     Indication: MIGRAINE
     Dosage: UNK
     Route: 067
     Dates: start: 200501, end: 20060517
  2. NUVARING [Suspect]
     Indication: HORMONE THERAPY
  3. NUVARING [Suspect]
     Indication: CONTRACEPTION
  4. VENLAFAXINE HYDROCHLORIDE [Concomitant]
     Indication: DEPRESSION
     Dosage: 112.5 mg, qd
     Dates: start: 2000, end: 2006
  5. VENLAFAXINE HYDROCHLORIDE [Concomitant]
     Indication: ADJUSTMENT DISORDER
  6. VENLAFAXINE HYDROCHLORIDE [Concomitant]
     Indication: CONTRACEPTION

REACTIONS (9)
  - Lung infiltration [Unknown]
  - Pulmonary embolism [Unknown]
  - Pulmonary infarction [Unknown]
  - Incorrect drug administration duration [Unknown]
  - Metrorrhagia [Recovering/Resolving]
  - Bronchitis [Unknown]
  - Loss of libido [Unknown]
  - Headache [Not Recovered/Not Resolved]
  - Hypertension [Unknown]
